FAERS Safety Report 9953746 (Version 1)
Quarter: 2014Q1

REPORT INFORMATION
  Report Type: Spontaneous
  Country: US (occurrence: US)
  Receive Date: 20140304
  Receipt Date: 20140304
  Transmission Date: 20141002
  Serious: No
  Sender: FDA-Public Use
  Company Number: US-AMGEN-USASP2013074926

PATIENT
  Age: 40 Year
  Sex: Female
  Weight: 96.6 kg

DRUGS (10)
  1. ENBREL [Suspect]
     Indication: PRODUCT USED FOR UNKNOWN INDICATION
     Dosage: 50 MG, QWK
     Route: 058
  2. OXYCONTIN [Concomitant]
     Dosage: 30 MG, UNK
     Route: 048
  3. PERCOCET                           /00867901/ [Concomitant]
     Dosage: 7.5-325
     Route: 048
  4. DIAZEPAM [Concomitant]
     Dosage: 5 MG, UNK
     Route: 048
  5. CYMBALTA [Concomitant]
     Dosage: 30 MG, UNK
     Route: 048
  6. FOLIC ACID [Concomitant]
     Dosage: UNK
     Route: 048
  7. VITAMIN D                          /00318501/ [Concomitant]
     Dosage: 1000 UNIT
     Route: 048
  8. ADDERALL [Concomitant]
     Dosage: 10 MG, UNK
     Route: 048
  9. METHOTREXATE [Concomitant]
     Dosage: 2.5 MG, UNK
     Route: 048
  10. VITAMIN B1                         /00056102/ [Concomitant]
     Dosage: 100 MG, UNK
     Route: 048

REACTIONS (2)
  - Pain in extremity [Unknown]
  - Arthralgia [Unknown]
